FAERS Safety Report 20350770 (Version 3)
Quarter: 2022Q1

REPORT INFORMATION
  Report Type: Spontaneous
  Country: FR (occurrence: FR)
  Receive Date: 20220119
  Receipt Date: 20220208
  Transmission Date: 20220423
  Serious: Yes (Hospitalization, Other)
  Sender: FDA-Public Use
  Company Number: None

PATIENT

DRUGS (5)
  1. SUBOXONE [Suspect]
     Active Substance: BUPRENORPHINE HYDROCHLORIDE\NALOXONE HYDROCHLORIDE
     Indication: Product used for unknown indication
     Dosage: 56 MILLIGRAM DAILY
     Route: 048
     Dates: start: 2018, end: 20210213
  2. BUPRENORPHINE [Suspect]
     Active Substance: BUPRENORPHINE
     Indication: Product used for unknown indication
     Dosage: 24 MILLIGRAM, QD (MISUSED UP TO 7 CP OF 8MG I.E. 56 MG/D)
     Route: 065
     Dates: start: 202102
  3. NICOTINE [Suspect]
     Active Substance: NICOTINE
     Indication: Product used for unknown indication
     Dosage: 12 CIGARETTES PER DAY
     Route: 055
     Dates: start: 1998
  4. ALCOHOL [Suspect]
     Active Substance: ALCOHOL
     Indication: Product used for unknown indication
     Dosage: UNK
     Route: 048
  5. BROMAZEPAM [Suspect]
     Active Substance: BROMAZEPAM
     Indication: Product used for unknown indication
     Dosage: 6 MG (UP TO 48 MG PER DAY) (FOUR-SCORED TABLET)
     Route: 048
     Dates: start: 2005, end: 20210213

REACTIONS (8)
  - Incoherent [Recovered/Resolved]
  - Sleep disorder [Recovering/Resolving]
  - Delusional disorder, persecutory type [Recovered/Resolved]
  - Logorrhoea [Recovered/Resolved]
  - Hallucination [Recovered/Resolved]
  - Tachycardia [Recovered/Resolved]
  - Drug abuse [Not Recovered/Not Resolved]
  - Prescribed overdose [Unknown]

NARRATIVE: CASE EVENT DATE: 19980101
